FAERS Safety Report 17291210 (Version 2)
Quarter: 2020Q2

REPORT INFORMATION
  Report Type: Spontaneous
  Country: AE (occurrence: AE)
  Receive Date: 20200121
  Receipt Date: 20200527
  Transmission Date: 20200713
  Serious: No
  Sender: FDA-Public Use
  Company Number: AE-SA-2020SA014052

PATIENT
  Age: 77 Year
  Sex: Male

DRUGS (5)
  1. ALIROCUMAB [Suspect]
     Active Substance: ALIROCUMAB
     Indication: LOW DENSITY LIPOPROTEIN INCREASED
     Dosage: 75 MG/ML, QOW
     Route: 058
  2. ALIROCUMAB [Suspect]
     Active Substance: ALIROCUMAB
     Dosage: UNK UNK, Q4W
     Route: 058
  3. VALSARTAN. [Concomitant]
     Active Substance: VALSARTAN
  4. METFORMIN [Concomitant]
     Active Substance: METFORMIN HYDROCHLORIDE
  5. ASPIRIN [ACETYLSALICYLIC ACID] [Concomitant]
     Active Substance: ASPIRIN

REACTIONS (3)
  - Hyperlipasaemia [Not Recovered/Not Resolved]
  - Hyperamylasaemia [Not Recovered/Not Resolved]
  - Off label use [Unknown]
